FAERS Safety Report 23229947 (Version 1)
Quarter: 2023Q4

REPORT INFORMATION
  Report Type: Spontaneous
  Country: IR (occurrence: IR)
  Receive Date: 20231127
  Receipt Date: 20231127
  Transmission Date: 20240110
  Serious: Yes (Death, Life-Threatening, Other)
  Sender: FDA-Public Use
  Company Number: None

PATIENT
  Age: 85 Year
  Sex: Female

DRUGS (9)
  1. DEXAMETHASONE [Suspect]
     Active Substance: DEXAMETHASONE
     Indication: Langerhans^ cell histiocytosis
     Dosage: UNK
     Route: 065
  2. ETOPOSIDE [Suspect]
     Active Substance: ETOPOSIDE
     Indication: Langerhans^ cell histiocytosis
     Dosage: UNK
     Route: 065
  3. VANCOMYCIN [Suspect]
     Active Substance: VANCOMYCIN
     Indication: Langerhans^ cell histiocytosis
     Dosage: UNK; WIDE-SPECTRUM ANTIBIOTICS
     Route: 065
  4. OSELTAMIVIR [Suspect]
     Active Substance: OSELTAMIVIR
     Indication: Langerhans^ cell histiocytosis
     Dosage: UNK; ANTIVIRAL AGENTS
     Route: 065
  5. ACYCLOVIR [Suspect]
     Active Substance: ACYCLOVIR
     Indication: Langerhans^ cell histiocytosis
     Dosage: UNK; ANTIVIRAL AGENTS
     Route: 065
  6. MEROPENEM [Suspect]
     Active Substance: MEROPENEM
     Indication: Langerhans^ cell histiocytosis
     Dosage: UNK; WIDE-SPECTRUM ANTIBIOTICS
     Route: 065
  7. VINBLASTINE [Suspect]
     Active Substance: VINBLASTINE
     Indication: Langerhans^ cell histiocytosis
     Dosage: UNK
     Route: 065
  8. COTRIMOXAZOLE [Concomitant]
     Active Substance: SULFAMETHOXAZOLE\TRIMETHOPRIM
     Indication: Langerhans^ cell histiocytosis
     Dosage: UNK; WIDE-SPECTRUM ANTIBIOTICS
     Route: 065
  9. AMPHOTERICIN B [Concomitant]
     Active Substance: AMPHOTERICIN B
     Indication: Langerhans^ cell histiocytosis
     Dosage: UNK; ANTIFUNGAL AGENTS
     Route: 065

REACTIONS (2)
  - Therapy partial responder [Fatal]
  - Off label use [Unknown]
